FAERS Safety Report 18187997 (Version 2)
Quarter: 2021Q1

REPORT INFORMATION
  Report Type: Spontaneous
  Country: CA (occurrence: CA)
  Receive Date: 20200824
  Receipt Date: 20210113
  Transmission Date: 20210419
  Serious: Yes (Other)
  Sender: FDA-Public Use
  Company Number: CA-OTSUKA-2020_020223

PATIENT
  Age: 9 Year
  Sex: Male

DRUGS (17)
  1. DAUNORUBICIN [Suspect]
     Active Substance: DAUNORUBICIN
     Indication: ACUTE MYELOID LEUKAEMIA
     Dosage: 50 MG/M2/ DOSE DAYS 1,3, AND 5  (CYCLE 2)
     Route: 065
  2. SORAFENIB [Suspect]
     Active Substance: SORAFENIB
     Dosage: UNK (2 YEARS)
     Route: 065
     Dates: start: 201709, end: 201809
  3. CYCLOPHOSPHAMIDE. [Suspect]
     Active Substance: CYCLOPHOSPHAMIDE
     Indication: ACUTE MYELOID LEUKAEMIA
     Dosage: UNK
     Route: 065
     Dates: start: 2017
  4. CYTARABINE. [Suspect]
     Active Substance: CYTARABINE
     Indication: ACUTE MYELOID LEUKAEMIA
     Dosage: 2000 MG/M2, QD (FOR 5 DAYS)
     Route: 065
     Dates: start: 2017
  5. ETOPOSIDE. [Suspect]
     Active Substance: ETOPOSIDE
     Dosage: 100.0 MG/M2, UNK
     Route: 065
     Dates: start: 2017
  6. FILGRASTIM [Suspect]
     Active Substance: FILGRASTIM
     Indication: ACUTE MYELOID LEUKAEMIA
     Dosage: 5 ?G/M2, QD (FOR 7 DAYS)
     Route: 065
     Dates: start: 2019
  7. THYMOGLOBULIN [Suspect]
     Active Substance: LAPINE T-LYMPHOCYTE IMMUNE GLOBULIN
     Indication: ACUTE MYELOID LEUKAEMIA
     Dosage: UNK
     Route: 065
  8. CYTARABINE. [Suspect]
     Active Substance: CYTARABINE
     Dosage: 100 MG/M2, EVERY 12 HOURS DAYS (1?10) (CYCLE 1)
     Route: 065
     Dates: start: 2017
  9. CYTARABINE. [Suspect]
     Active Substance: CYTARABINE
     Dosage: 1000 MG/M2, EVERY 12 HOURS DAYS (1?5) (CYCLE 3)
     Route: 065
     Dates: start: 2017
  10. ETOPOSIDE. [Suspect]
     Active Substance: ETOPOSIDE
     Indication: ACUTE MYELOID LEUKAEMIA
     Dosage: 100.0 MG/M2, UNKNOWN (DOSE DAYS 1?5)
     Route: 065
     Dates: start: 2017
  11. MIDOSTAURIN [Suspect]
     Active Substance: MIDOSTAURIN
     Dosage: 15 MG/M2, BID
     Route: 048
     Dates: start: 20200313
  12. BUSULFAN. [Suspect]
     Active Substance: BUSULFAN
     Indication: ACUTE MYELOID LEUKAEMIA
     Dosage: UNK
     Route: 065
  13. FLUDARABINE [Suspect]
     Active Substance: FLUDARABINE PHOSPHATE
     Indication: ACUTE MYELOID LEUKAEMIA
     Dosage: 30 MG/M2, QD (FOR 5 DAYS)
     Route: 065
  14. SORAFENIB [Suspect]
     Active Substance: SORAFENIB
     Indication: ACUTE MYELOID LEUKAEMIA
     Dosage: 200 MG/M2, QD
     Route: 065
     Dates: start: 201911
  15. MIDOSTAURIN [Suspect]
     Active Substance: MIDOSTAURIN
     Dosage: 30 MG/M2, UNK
     Route: 048
     Dates: start: 20200313
  16. CYTARABINE. [Suspect]
     Active Substance: CYTARABINE
     Dosage: 100 MG/M2, EVERY 12 HOURS DAYS (1?8) (CYCLE 2)
     Route: 065
     Dates: start: 2017
  17. MIDOSTAURIN [Suspect]
     Active Substance: MIDOSTAURIN
     Indication: ACUTE MYELOID LEUKAEMIA
     Dosage: 15 MG, UNK
     Route: 048
     Dates: start: 2017, end: 2017

REACTIONS (6)
  - Lymphadenopathy [Recovered/Resolved with Sequelae]
  - Skin toxicity [Recovered/Resolved with Sequelae]
  - Bone marrow failure [Recovered/Resolved with Sequelae]
  - Drug intolerance [Recovered/Resolved with Sequelae]
  - Acute myeloid leukaemia recurrent [Recovered/Resolved with Sequelae]
  - Pancytopenia [Recovered/Resolved with Sequelae]
